FAERS Safety Report 22198016 (Version 1)
Quarter: 2023Q2

REPORT INFORMATION
  Report Type: Report from Study
  Country: FR (occurrence: FR)
  Receive Date: 20230411
  Receipt Date: 20230411
  Transmission Date: 20230722
  Serious: Yes (Hospitalization)
  Sender: FDA-Public Use
  Company Number: FR-JNJFOC-20230402244

PATIENT
  Age: 44 Year
  Sex: Male

DRUGS (9)
  1. SPRAVATO [Suspect]
     Active Substance: ESKETAMINE
     Indication: Depression
     Dosage: 56 MG, 1 TOTAL DOSE
     Dates: start: 20220111, end: 20220111
  2. SPRAVATO [Suspect]
     Active Substance: ESKETAMINE
     Dosage: 84 MG, 7 DOSES
     Dates: start: 20220113, end: 20220203
  3. SPRAVATO [Suspect]
     Active Substance: ESKETAMINE
     Dosage: 84 MG, 3 DOSES
     Dates: start: 20220210, end: 20220224
  4. SPRAVATO [Suspect]
     Active Substance: ESKETAMINE
     Dosage: 84 MG, 8 DOSES
     Dates: start: 20220308, end: 20220621
  5. SPRAVATO [Suspect]
     Active Substance: ESKETAMINE
     Dosage: 56 MG 1 DOSE
     Dates: start: 20220707, end: 20220707
  6. FLUOXETINE [Concomitant]
     Active Substance: FLUOXETINE HYDROCHLORIDE
     Indication: Depression
     Route: 065
     Dates: start: 20211230, end: 20220926
  7. LEUCOVORIN [Concomitant]
     Active Substance: LEUCOVORIN
     Indication: Vitamin B complex deficiency
     Route: 065
     Dates: start: 20211230
  8. MIRTAZAPINE [Concomitant]
     Active Substance: MIRTAZAPINE
     Route: 065
     Dates: start: 20210407, end: 20210907
  9. MIRTAZAPINE [Concomitant]
     Active Substance: MIRTAZAPINE
     Route: 065
     Dates: start: 20211007

REACTIONS (1)
  - Suicidal ideation [Recovered/Resolved]

NARRATIVE: CASE EVENT DATE: 20220120
